FAERS Safety Report 15329604 (Version 2)
Quarter: 2018Q3

REPORT INFORMATION
  Report Type: Spontaneous
  Country: US (occurrence: US)
  Receive Date: 20180829
  Receipt Date: 20180919
  Transmission Date: 20181010
  Serious: Yes (Other)
  Sender: FDA-Public Use
  Company Number: US-UNITED THERAPEUTICS-UNT-2018-013446

PATIENT
  Age: 87 Year
  Sex: Male
  Weight: 68.27 kg

DRUGS (2)
  1. TYVASO [Suspect]
     Active Substance: TREPROSTINIL
     Dosage: 18 ?G, QID
  2. TYVASO [Suspect]
     Active Substance: TREPROSTINIL
     Indication: PULMONARY ARTERIAL HYPERTENSION
     Dosage: 18?54 ?G, QID
     Dates: start: 20180814, end: 20180822

REACTIONS (8)
  - Insomnia [Unknown]
  - Drug ineffective [Unknown]
  - Dyspnoea exertional [Unknown]
  - Heart rate increased [Unknown]
  - Haemoptysis [Unknown]
  - Asthenia [Unknown]
  - Oxygen saturation decreased [Not Recovered/Not Resolved]
  - Gait disturbance [Unknown]

NARRATIVE: CASE EVENT DATE: 201808
